FAERS Safety Report 20628797 (Version 1)
Quarter: 2022Q1

REPORT INFORMATION
  Report Type: Spontaneous
  Country: GB (occurrence: GB)
  Receive Date: 20220323
  Receipt Date: 20220323
  Transmission Date: 20220423
  Serious: Yes (Other)
  Sender: FDA-Public Use
  Company Number: GB-CELGENE-GBR-20211105984

PATIENT
  Sex: Male

DRUGS (4)
  1. DEXAMETHASONE [Suspect]
     Active Substance: DEXAMETHASONE
     Indication: Product used for unknown indication
     Dosage: 2 MILLIGRAM
  2. METOCLOPRAMIDE [Suspect]
     Active Substance: METOCLOPRAMIDE
     Indication: Product used for unknown indication
     Dosage: 10 MILLIGRAM
  3. OMEPRAZOLE [Suspect]
     Active Substance: OMEPRAZOLE
     Indication: Product used for unknown indication
     Dosage: 20 MILLIGRAM
  4. REVLIMID [Suspect]
     Active Substance: LENALIDOMIDE
     Indication: Product used for unknown indication
     Dosage: 10 MILLIGRAM

REACTIONS (5)
  - Neuropathy peripheral [Unknown]
  - Plasma cell myeloma recurrent [Unknown]
  - Pain in extremity [Unknown]
  - Blister [Unknown]
  - Hypophagia [Unknown]
